FAERS Safety Report 24859296 (Version 2)
Quarter: 2025Q1

REPORT INFORMATION
  Report Type: Spontaneous
  Country: SG (occurrence: SG)
  Receive Date: 20250118
  Receipt Date: 20250203
  Transmission Date: 20250409
  Serious: Yes (Hospitalization, Disabling, Other)
  Sender: SANOFI AVENTIS
  Company Number: BD-AVENTIS-200319687GDDC

PATIENT
  Age: 57 Year
  Sex: Female

DRUGS (3)
  1. DOCETAXEL [Suspect]
     Active Substance: DOCETAXEL
     Indication: Invasive ductal breast carcinoma
     Route: 042
  2. CAPECITABINE [Suspect]
     Active Substance: CAPECITABINE
     Indication: Invasive ductal breast carcinoma
     Route: 042
  3. DOXORUBICIN [Suspect]
     Active Substance: DOXORUBICIN
     Indication: Invasive ductal breast carcinoma
     Route: 042

REACTIONS (24)
  - Peripheral artery thrombosis [Recovered/Resolved]
  - Gastrointestinal necrosis [Recovered/Resolved]
  - Venous thrombosis [Recovered/Resolved]
  - Intestinal infarction [Recovered/Resolved]
  - Abdominal distension [Recovered/Resolved]
  - Intestinal ischaemia [Recovered/Resolved]
  - Gastrointestinal ulcer [Recovered/Resolved]
  - Intestinal dilatation [Recovered/Resolved]
  - Intestinal perforation [Recovered/Resolved]
  - Mucosal inflammation [Unknown]
  - Pseudomonas infection [Unknown]
  - Pyrexia [Unknown]
  - Vomiting [Unknown]
  - Diarrhoea [Unknown]
  - Neutropenia [Unknown]
  - Septic shock [Unknown]
  - Thrombocytopenia [Unknown]
  - Escherichia infection [Unknown]
  - Atrial fibrillation [Unknown]
  - Aspergillus infection [Recovered/Resolved]
  - Abdominal infection [Recovered/Resolved]
  - Fungaemia [Recovered/Resolved]
  - Candida infection [Recovered/Resolved]
  - Pneumonia staphylococcal [Recovered/Resolved]
